FAERS Safety Report 9771750 (Version 3)
Quarter: 2014Q1

REPORT INFORMATION
  Report Type: Spontaneous
  Country: CH (occurrence: CH)
  Receive Date: 20131219
  Receipt Date: 20140210
  Transmission Date: 20141002
  Serious: Yes (Other)
  Sender: FDA-Public Use
  Company Number: CH-BEH-2013039578

PATIENT
  Age: 38 Year
  Sex: Female
  Weight: 60 kg

DRUGS (2)
  1. PRIVIGEN [Suspect]
     Indication: PROPHYLAXIS OF ABORTION
     Dosage: ADMINISTRATION IN 4TH GESTATION WK
     Route: 042
     Dates: start: 20131121, end: 20131121
  2. PRIVIGEN [Suspect]
     Indication: HABITUAL ABORTION
     Dosage: ADMINISTRATION IN 4TH GESTATION WK
     Route: 042
     Dates: start: 20131121, end: 20131121

REACTIONS (2)
  - Drug ineffective for unapproved indication [Unknown]
  - Exposure during pregnancy [Unknown]
